FAERS Safety Report 25407320 (Version 1)
Quarter: 2025Q2

REPORT INFORMATION
  Report Type: Spontaneous
  Country: AU (occurrence: AU)
  Receive Date: 20250606
  Receipt Date: 20250606
  Transmission Date: 20250717
  Serious: Yes (Other)
  Sender: PFIZER
  Company Number: AU-PFIZER INC-PV202500066704

PATIENT

DRUGS (8)
  1. ADALIMUMAB [Suspect]
     Active Substance: ADALIMUMAB
  2. INFLIXIMAB [Suspect]
     Active Substance: INFLIXIMAB
  3. METHOTREXATE SODIUM [Suspect]
     Active Substance: METHOTREXATE SODIUM
  4. AZATHIOPRINE [Suspect]
     Active Substance: AZATHIOPRINE
  5. CYCLOPHOSPHAMIDE [Suspect]
     Active Substance: CYCLOPHOSPHAMIDE
  6. KINERET [Suspect]
     Active Substance: ANAKINRA
  7. PREDNISOLONE [Suspect]
     Active Substance: PREDNISOLONE
  8. TOCILIZUMAB [Suspect]
     Active Substance: TOCILIZUMAB

REACTIONS (6)
  - Polyarteritis nodosa [Unknown]
  - Systemic inflammatory response syndrome [Unknown]
  - Condition aggravated [Unknown]
  - Toxicity to various agents [Unknown]
  - Injection site hypersensitivity [Unknown]
  - Off label use [Unknown]
